FAERS Safety Report 9354085 (Version 1)
Quarter: 2013Q2

REPORT INFORMATION
  Report Type: Spontaneous
  Country: US (occurrence: None)
  Receive Date: 20130613
  Receipt Date: 20130613
  Transmission Date: 20140414
  Serious: Yes (Other)
  Sender: FDA-Public Use
  Company Number: PRP-00131

PATIENT
  Sex: Female

DRUGS (2)
  1. PROPRANOLOL HYDROCHLORIDE [Suspect]
     Indication: TORSADE DE POINTES
  2. MEXILETINE [Suspect]
     Indication: TORSADE DE POINTES

REACTIONS (1)
  - Cardiac pacemaker insertion [None]
